FAERS Safety Report 24837028 (Version 4)
Quarter: 2025Q2

REPORT INFORMATION
  Report Type: Spontaneous
  Country: US (occurrence: US)
  Receive Date: 20250113
  Receipt Date: 20250410
  Transmission Date: 20250716
  Serious: Yes (Death, Life-Threatening, Hospitalization, Other)
  Sender: ELI LILLY AND CO
  Company Number: US-ELI_LILLY_AND_COMPANY-US202501004344

PATIENT
  Age: 77 Year
  Sex: Female

DRUGS (2)
  1. KISUNLA [Suspect]
     Active Substance: DONANEMAB-AZBT
     Indication: Cognitive disorder
     Route: 042
     Dates: start: 202411
  2. KISUNLA [Suspect]
     Active Substance: DONANEMAB-AZBT
     Indication: Dementia

REACTIONS (5)
  - Death [Fatal]
  - Cerebral haemorrhage [Recovering/Resolving]
  - Brain oedema [Recovering/Resolving]
  - Amyloid related imaging abnormalities [Unknown]
  - Balance disorder [Recovering/Resolving]
